FAERS Safety Report 8218853-8 (Version None)
Quarter: 2012Q1

REPORT INFORMATION
  Report Type: 
  Country: None (occurrence: None)
  Receive Date: 20120319
  Receipt Date: 20120314
  Transmission Date: 20120608
  Serious: Yes (Death, Other)
  Sender: FDA-Public Use
  Company Number: PHHY2012CA020460

PATIENT
  Sex: Male

DRUGS (1)
  1. EXJADE [Suspect]
     Indication: MYELODYSPLASTIC SYNDROME
     Dosage: 500 MG, UNK
     Route: 048
     Dates: start: 20110501

REACTIONS (14)
  - CARDIAC ARREST [None]
  - CONFUSIONAL STATE [None]
  - PAIN [None]
  - PULSE ABSENT [None]
  - RESPIRATORY ARREST [None]
  - PULMONARY OEDEMA [None]
  - CARDIAC FAILURE CHRONIC [None]
  - HYPOPHAGIA [None]
  - OEDEMA PERIPHERAL [None]
  - LOSS OF CONSCIOUSNESS [None]
  - DYSPNOEA [None]
  - CYANOSIS [None]
  - HAEMOGLOBIN DECREASED [None]
  - RESPIRATORY TRACT OEDEMA [None]
